FAERS Safety Report 13053895 (Version 1)
Quarter: 2016Q4

REPORT INFORMATION
  Report Type: Spontaneous
  Country: US (occurrence: US)
  Receive Date: 20161221
  Receipt Date: 20161221
  Transmission Date: 20170207
  Serious: Yes (Death)
  Sender: FDA-Public Use
  Company Number: None

PATIENT
  Age: 55 Year
  Sex: Male
  Weight: 63 kg

DRUGS (3)
  1. COUGH SYRUP W/CODDEINE [Suspect]
     Active Substance: CODEINE
  2. ATIVAN [Suspect]
     Active Substance: LORAZEPAM
     Indication: ANXIETY
     Dosage: ?          QUANTITY:1 TABLET(S);?
     Route: 048
     Dates: start: 20161203, end: 20161204
  3. OXYGEN. [Concomitant]
     Active Substance: OXYGEN

REACTIONS (3)
  - Dysarthria [None]
  - Gait disturbance [None]
  - Fall [None]

NARRATIVE: CASE EVENT DATE: 20161203
